FAERS Safety Report 5230234-8 (Version None)
Quarter: 2007Q1

REPORT INFORMATION
  Report Type: 
  Country: None (occurrence: None)
  Receive Date: 20070206
  Receipt Date: 20061012
  Transmission Date: 20070707
  Serious: No
  Sender: FDA-Public Use
  Company Number: US-GLAXOSMITHKLINE-A0623411A

PATIENT
  Age: 55 Year
  Sex: Female

DRUGS (7)
  1. PAXIL CR [Suspect]
     Indication: ANXIETY DISORDER
     Dosage: 37.5MG PER DAY
     Route: 048
     Dates: start: 20021001
  2. PREMARIN [Concomitant]
  3. TRIAMTERENE [Concomitant]
  4. TOPROL-XL [Concomitant]
  5. PROVICAL [Concomitant]
  6. INHALER [Concomitant]
  7. TRAZODONE HCL [Concomitant]

REACTIONS (6)
  - ANXIETY [None]
  - DIZZINESS [None]
  - DRUG WITHDRAWAL SYNDROME [None]
  - HYPERTENSION [None]
  - NAUSEA [None]
  - TREMOR [None]
